FAERS Safety Report 11272447 (Version 1)
Quarter: 2015Q3

REPORT INFORMATION
  Report Type: Spontaneous
  Country: US (occurrence: None)
  Receive Date: 20150713
  Receipt Date: 20150713
  Transmission Date: 20151125
  Serious: No
  Sender: FDA-Public Use
  Company Number: None

PATIENT
  Age: 63 Year
  Sex: Female
  Weight: 61.69 kg

DRUGS (5)
  1. COMPLETE VITAMIN [Concomitant]
  2. NEXIUM [Concomitant]
     Active Substance: ESOMEPRAZOLE MAGNESIUM
  3. SPIRIVA [Suspect]
     Active Substance: TIOTROPIUM BROMIDE MONOHYDRATE
     Indication: CHRONIC OBSTRUCTIVE PULMONARY DISEASE
     Route: 055
     Dates: start: 20150320, end: 20150702
  4. GAPAPENTINE ARROW [Concomitant]
     Active Substance: GABAPENTIN
  5. LEXAPRO [Concomitant]
     Active Substance: ESCITALOPRAM OXALATE

REACTIONS (12)
  - Urinary tract infection [None]
  - Pain [None]
  - Weight increased [None]
  - Dysphagia [None]
  - Respiratory disorder [None]
  - Depression [None]
  - Polydipsia [None]
  - Vomiting [None]
  - Abdominal pain upper [None]
  - Frustration [None]
  - Hunger [None]
  - Abdominal distension [None]

NARRATIVE: CASE EVENT DATE: 20150706
